FAERS Safety Report 12866876 (Version 6)
Quarter: 2017Q1

REPORT INFORMATION
  Report Type: Report from Study
  Country: None (occurrence: TW)
  Receive Date: 20161020
  Receipt Date: 20170202
  Transmission Date: 20170428
  Serious: Yes (Hospitalization)
  Sender: FDA-Public Use
  Company Number: TW-ABBVIE-16K-153-1756725-00

PATIENT
  Age: 68 Year
  Sex: Female
  Weight: 56 kg

DRUGS (5)
  1. PREDNISOLONE. [Concomitant]
     Active Substance: PREDNISOLONE
     Indication: COLITIS ULCERATIVE
     Route: 048
     Dates: start: 20161007, end: 20161123
  2. MESALAZINE [Concomitant]
     Active Substance: MESALAMINE
     Indication: COLITIS ULCERATIVE
     Route: 048
     Dates: start: 20160727, end: 20161123
  3. HUMIRA [Suspect]
     Active Substance: ADALIMUMAB
     Route: 058
     Dates: start: 20161115, end: 20161115
  4. PREDNISOLONE. [Concomitant]
     Active Substance: PREDNISOLONE
     Route: 048
     Dates: start: 2016, end: 201611
  5. HUMIRA [Suspect]
     Active Substance: ADALIMUMAB
     Indication: COLITIS ULCERATIVE
     Route: 058
     Dates: start: 20160504, end: 20160921

REACTIONS (15)
  - Bacteraemia [Recovering/Resolving]
  - Renal abscess [Recovering/Resolving]
  - Red cell distribution width increased [Unknown]
  - Herpes virus infection [Recovering/Resolving]
  - Dysuria [Recovering/Resolving]
  - Delirium [Unknown]
  - Chest pain [Recovering/Resolving]
  - Haemoglobin decreased [Unknown]
  - Diabetes mellitus inadequate control [Recovering/Resolving]
  - Lung infiltration [Unknown]
  - Candiduria [Unknown]
  - Haematocrit decreased [Unknown]
  - Oliguria [Recovering/Resolving]
  - Pulmonary oedema [Recovering/Resolving]
  - Red blood cell count decreased [Unknown]

NARRATIVE: CASE EVENT DATE: 201610
